FAERS Safety Report 13162643 (Version 1)
Quarter: 2017Q1

REPORT INFORMATION
  Report Type: Spontaneous
  Country: US (occurrence: US)
  Receive Date: 20170128
  Receipt Date: 20170128
  Transmission Date: 20170428
  Serious: Yes (Other)
  Sender: FDA-Public Use
  Company Number: None

PATIENT
  Age: 47 Year
  Sex: Female
  Weight: 79.2 kg

DRUGS (9)
  1. MULTI VITAMINS [Concomitant]
     Active Substance: VITAMINS
  2. TAXOL [Suspect]
     Active Substance: PACLITAXEL
     Indication: CHEMOTHERAPY
     Dates: start: 20141223, end: 20150620
  3. EXEMESTANE. [Concomitant]
     Active Substance: EXEMESTANE
  4. HORMONE [Concomitant]
     Active Substance: UNSPECIFIED INGREDIENT
  5. GLUCOSAMINE WITH CHONDROITIN [Concomitant]
  6. ASPIRIN. [Concomitant]
     Active Substance: ASPIRIN
  7. BIOTIN [Concomitant]
     Active Substance: BIOTIN
  8. ESSENTIAL OILS. [Concomitant]
     Active Substance: ESSENTIAL OILS
  9. VITAMIN C [Concomitant]
     Active Substance: ASCORBIC ACID

REACTIONS (2)
  - Alopecia [None]
  - Madarosis [None]

NARRATIVE: CASE EVENT DATE: 20141223
